FAERS Safety Report 8054898-9 (Version None)
Quarter: 2012Q1

REPORT INFORMATION
  Report Type: 
  Country: None (occurrence: None)
  Receive Date: 20120119
  Receipt Date: 20120109
  Transmission Date: 20120608
  Serious: Yes (Hospitalization)
  Sender: FDA-Public Use
  Company Number: US-BAYER-2010-002234

PATIENT
  Age: 25 Year
  Sex: Female
  Weight: 59 kg

DRUGS (7)
  1. YASMIN [Suspect]
     Dosage: UNK
     Dates: start: 20060601, end: 20080201
  2. CEPHALEXIN [Concomitant]
     Dosage: 500 MG, UNK
     Route: 048
     Dates: start: 20090430
  3. YASMIN [Suspect]
     Dosage: UNK
     Dates: start: 20080801, end: 20090401
  4. AMOXICILLIN [Concomitant]
     Dosage: 500 MG, UNK
     Route: 048
     Dates: start: 20090318
  5. ASTELIN [Concomitant]
     Dosage: 137 UNK, UNK
     Route: 045
     Dates: start: 20090324
  6. YAZ [Suspect]
     Dosage: UNK
     Dates: start: 20080301, end: 20080701
  7. CHERATUSSIN AC [Concomitant]
     Dosage: UNK
     Route: 048
     Dates: start: 20090430

REACTIONS (6)
  - ANHEDONIA [None]
  - FEAR [None]
  - DEEP VEIN THROMBOSIS [None]
  - ANXIETY [None]
  - PAIN [None]
  - QUALITY OF LIFE DECREASED [None]
